FAERS Safety Report 14008152 (Version 1)
Quarter: 2017Q3

REPORT INFORMATION
  Report Type: Spontaneous
  Country: US (occurrence: None)
  Receive Date: 20170924
  Receipt Date: 20170924
  Transmission Date: 20171128
  Serious: Yes (Hospitalization)
  Sender: FDA-Public Use
  Company Number: None

PATIENT
  Age: 59 Year
  Sex: Male
  Weight: 70.6 kg

DRUGS (10)
  1. FLOMAX [Concomitant]
     Active Substance: TAMSULOSIN HYDROCHLORIDE
  2. VALIUM [Concomitant]
     Active Substance: DIAZEPAM
  3. MAALOX-DIPHENYDRAINE-VISCOUS LIDOCAINE (MAGIC MOUTHWASH) [Concomitant]
  4. ZOFRAN ODT [Concomitant]
     Active Substance: ONDANSETRON HYDROCHLORIDE
  5. SODIUM CHLORIDE (OCEAN NASAL) [Concomitant]
  6. CISPLATIN. [Suspect]
     Active Substance: CISPLATIN
     Dates: end: 20170906
  7. LORATADINE-PSEUDOEPHEDRINE (CLARITIN-D 12-HOUR) [Concomitant]
  8. NEURONTIN [Concomitant]
     Active Substance: GABAPENTIN
  9. ROXICODONE [Concomitant]
     Active Substance: OXYCODONE HYDROCHLORIDE
  10. PROCHLORPERAZINE (COMPAZINE) [Concomitant]

REACTIONS (5)
  - Nephrolithiasis [None]
  - Constipation [None]
  - Hydronephrosis [None]
  - Flank pain [None]
  - Faecaloma [None]

NARRATIVE: CASE EVENT DATE: 20170911
